FAERS Safety Report 8161499-0 (Version None)
Quarter: 2012Q1

REPORT INFORMATION
  Report Type: 
  Country: None (occurrence: None)
  Receive Date: 20120224
  Receipt Date: 20120221
  Transmission Date: 20120608
  Serious: No
  Sender: FDA-Public Use
  Company Number: US-PFIZER INC-2012034919

PATIENT
  Sex: Male

DRUGS (1)
  1. DEPO-TESTOSTERONE [Suspect]
     Dosage: 200 MG, UNK

REACTIONS (2)
  - POOR QUALITY DRUG ADMINISTERED [None]
  - BURNING SENSATION [None]
